FAERS Safety Report 4326007-0 (Version None)
Quarter: 2004Q1

REPORT INFORMATION
  Report Type: 
  Country: None (occurrence: None)
  Receive Date: 20040329
  Receipt Date: 20040202
  Transmission Date: 20041129
  Serious: Yes (Hospitalization, Other)
  Sender: FDA-Public Use
  Company Number: US-BRISTOL-MYERS SQUIBB COMPANY-12494365

PATIENT
  Age: 49 Year
  Sex: Male
  Weight: 84 kg

DRUGS (11)
  1. ATAZANAVIR [Suspect]
     Indication: HIV INFECTION
     Route: 048
     Dates: start: 20031218
  2. COCAINE [Suspect]
     Route: 045
  3. HEROIN [Suspect]
     Route: 042
  4. EPIVIR [Concomitant]
  5. VIRACEPT [Concomitant]
  6. OXYCONTIN [Concomitant]
  7. ABACAVIR [Concomitant]
  8. XANAX [Concomitant]
  9. DAPSONE [Concomitant]
     Indication: PROPHYLAXIS
  10. VIAGRA [Concomitant]
  11. EFFEXOR XR [Concomitant]

REACTIONS (24)
  - ASTHENIA [None]
  - BLOOD ALCOHOL INCREASED [None]
  - BLOOD CHLORIDE DECREASED [None]
  - BLOOD SODIUM DECREASED [None]
  - CHROMATURIA [None]
  - DECREASED APPETITE [None]
  - DYSURIA [None]
  - GLOMERULOSCLEROSIS [None]
  - HAEMATOCRIT DECREASED [None]
  - HAEMOGLOBIN DECREASED [None]
  - HEPATITIS C POSITIVE [None]
  - KIDNEY ENLARGEMENT [None]
  - LETHARGY [None]
  - NEUTROPHIL COUNT ABNORMAL [None]
  - OVERDOSE [None]
  - PANCYTOPENIA [None]
  - PLATELET COUNT DECREASED [None]
  - POLYSUBSTANCE ABUSE [None]
  - RENAL FAILURE ACUTE [None]
  - SOMNOLENCE [None]
  - TOXICOLOGIC TEST ABNORMAL [None]
  - TUBULOINTERSTITIAL NEPHRITIS [None]
  - URINE SODIUM DECREASED [None]
  - WHITE BLOOD CELL COUNT DECREASED [None]
